FAERS Safety Report 17270217 (Version 6)
Quarter: 2020Q1

REPORT INFORMATION
  Report Type: Report from Study
  Country: LB (occurrence: LB)
  Receive Date: 20200114
  Receipt Date: 20200331
  Transmission Date: 20200409
  Serious: Yes (Hospitalization)
  Sender: FDA-Public Use
  Company Number: LB-NOVOPROD-706174

PATIENT
  Age: 4 Year
  Sex: Male
  Weight: 9 kg

DRUGS (2)
  1. NOVOEIGHT [Suspect]
     Active Substance: ANTIHEMOPHILIC FACTOR, HUMAN RECOMBINANT
     Dosage: 500 IU, BID (2X500 IU DAILY)
     Route: 065
     Dates: start: 20200311
  2. NOVOEIGHT [Suspect]
     Active Substance: ANTIHEMOPHILIC FACTOR, HUMAN RECOMBINANT
     Indication: FACTOR VIII DEFICIENCY
     Dosage: 25 VIALS PER MONTH EXPECTED TO BE INCREASED TO 30 VIALS/ MONTH
     Route: 065
     Dates: start: 20191104

REACTIONS (6)
  - Contusion [Not Recovered/Not Resolved]
  - Complication associated with device [Unknown]
  - Ear injury [Recovering/Resolving]
  - Pain [Not Recovered/Not Resolved]
  - Ear haemorrhage [Recovering/Resolving]
  - Swelling [Not Recovered/Not Resolved]

NARRATIVE: CASE EVENT DATE: 20191104
